FAERS Safety Report 23195535 (Version 1)
Quarter: 2023Q4

REPORT INFORMATION
  Report Type: Spontaneous
  Country: KR (occurrence: KR)
  Receive Date: 20231117
  Receipt Date: 20231117
  Transmission Date: 20240110
  Serious: Yes (Other)
  Sender: FDA-Public Use
  Company Number: KR-BAYER-2023A163476

PATIENT
  Age: 63 Year
  Sex: Female

DRUGS (1)
  1. EYLEA [Suspect]
     Active Substance: AFLIBERCEPT
     Indication: Neovascular age-related macular degeneration
     Dosage: SOLUTION FOR INJECTION IN PRE-FILLED SYRINGE, 40MG/ML

REACTIONS (3)
  - Neovascular age-related macular degeneration [Unknown]
  - Disease progression [Unknown]
  - Therapeutic product effect incomplete [Unknown]
